FAERS Safety Report 9727263 (Version 2)
Quarter: 2013Q4

REPORT INFORMATION
  Report Type: Spontaneous
  Country: US (occurrence: US)
  Receive Date: 20131203
  Receipt Date: 20131219
  Transmission Date: 20140711
  Serious: No
  Sender: FDA-Public Use
  Company Number: US-PFIZER INC-2013340519

PATIENT
  Sex: Female

DRUGS (2)
  1. BOSULIF [Suspect]
     Dosage: 200 MG, UNK
  2. BOSULIF [Suspect]
     Dosage: 300 MG, UNK

REACTIONS (2)
  - Hepatic enzyme increased [Unknown]
  - Hepatotoxicity [Unknown]
